FAERS Safety Report 18738790 (Version 2)
Quarter: 2021Q2

REPORT INFORMATION
  Report Type: Report from Study
  Country: None (occurrence: CA)
  Receive Date: 20210114
  Receipt Date: 20210413
  Transmission Date: 20210717
  Serious: Yes (Hospitalization, Other)
  Sender: FDA-Public Use
  Company Number: CA-ABBVIE-21K-028-3723213-00

PATIENT
  Age: 79 Year
  Sex: Male

DRUGS (5)
  1. TAMSULOSIN [Concomitant]
     Active Substance: TAMSULOSIN
     Indication: PRODUCT USED FOR UNKNOWN INDICATION
  2. DOCUSATE SODIUM. [Concomitant]
     Active Substance: DOCUSATE SODIUM
     Indication: PRODUCT USED FOR UNKNOWN INDICATION
  3. LUPRON DEPOT [Suspect]
     Active Substance: LEUPROLIDE ACETATE
     Indication: PROSTATE CANCER
     Route: 030
     Dates: start: 20200417
  4. ASPIRIN. [Concomitant]
     Active Substance: ASPIRIN
     Indication: PRODUCT USED FOR UNKNOWN INDICATION
  5. METFORMIN [Concomitant]
     Active Substance: METFORMIN HYDROCHLORIDE
     Indication: PRODUCT USED FOR UNKNOWN INDICATION

REACTIONS (10)
  - Bladder cancer [Not Recovered/Not Resolved]
  - Spinal operation [Recovered/Resolved]
  - Hypoaesthesia [Recovering/Resolving]
  - Intervertebral disc disorder [Recovering/Resolving]
  - Fall [Recovered/Resolved]
  - Arthralgia [Not Recovered/Not Resolved]
  - Neck pain [Not Recovered/Not Resolved]
  - Fall [Recovered/Resolved]
  - Fall [Recovered/Resolved]
  - Bladder catheterisation [Not Recovered/Not Resolved]

NARRATIVE: CASE EVENT DATE: 202012
